FAERS Safety Report 11489717 (Version 3)
Quarter: 2015Q4

REPORT INFORMATION
  Report Type: Spontaneous
  Country: JP (occurrence: JP)
  Receive Date: 20150910
  Receipt Date: 20151211
  Transmission Date: 20160304
  Serious: Yes (Hospitalization, Other)
  Sender: FDA-Public Use
  Company Number: JP-GSKJP-JP2015JPN127630AA

PATIENT
  Age: 68 Year
  Sex: Female
  Weight: 55 kg

DRUGS (7)
  1. MECOBALAMIN [Concomitant]
     Active Substance: METHYLCOBALAMIN
  2. LIMAPROST ALFADEX [Concomitant]
     Active Substance: LIMAPROST
  3. VALTREX [Suspect]
     Active Substance: VALACYCLOVIR HYDROCHLORIDE
     Indication: HERPES ZOSTER
     Dosage: 3000 MG, 1D
     Route: 048
     Dates: start: 20150827, end: 20150830
  4. REBAMIPIDE [Concomitant]
     Active Substance: REBAMIPIDE
  5. BROTIZOLAM [Concomitant]
     Active Substance: BROTIZOLAM
  6. MIYA-BM [Concomitant]
     Active Substance: CLOSTRIDIUM BUTYRICUM SPORES STRAIN M-55
  7. LYRICA [Concomitant]
     Active Substance: PREGABALIN

REACTIONS (11)
  - Renal disorder [Recovering/Resolving]
  - Renal impairment [Recovering/Resolving]
  - Metabolic acidosis [Recovering/Resolving]
  - Hyperkalaemia [Recovering/Resolving]
  - Azotaemia [Recovering/Resolving]
  - Drug level increased [Recovering/Resolving]
  - Renal atrophy [Unknown]
  - Dyskinesia [Recovering/Resolving]
  - Nervous system disorder [Recovering/Resolving]
  - Altered state of consciousness [Recovering/Resolving]
  - Toxic encephalopathy [Recovering/Resolving]

NARRATIVE: CASE EVENT DATE: 20150830
